FAERS Safety Report 14107832 (Version 2)
Quarter: 2017Q4

REPORT INFORMATION
  Report Type: Report from Study
  Country: BE (occurrence: BE)
  Receive Date: 20171019
  Receipt Date: 20171025
  Transmission Date: 20180321
  Serious: Yes (Hospitalization)
  Sender: FDA-Public Use
  Company Number: BE-TAKEDA-2017MPI008267

PATIENT
  Age: 72 Year
  Sex: Male

DRUGS (2)
  1. VELCADE [Suspect]
     Active Substance: BORTEZOMIB
     Indication: PRODUCT USED FOR UNKNOWN INDICATION
     Dosage: 2.29 MG, 2/WEEK
     Route: 058
     Dates: start: 20170603
  2. VELCADE [Suspect]
     Active Substance: BORTEZOMIB
     Dosage: 2.29 MG, 1/WEEK
     Route: 058
     Dates: start: 201710

REACTIONS (8)
  - Gastric disorder [Unknown]
  - Tachycardia [Unknown]
  - Fatigue [Unknown]
  - Decreased appetite [Recovered/Resolved]
  - Diarrhoea [Unknown]
  - Apathy [Unknown]
  - Dizziness [Unknown]
  - Weight decreased [Unknown]

NARRATIVE: CASE EVENT DATE: 201709
